FAERS Safety Report 5974075-2 (Version None)
Quarter: 2008Q4

REPORT INFORMATION
  Report Type: 
  Country: None (occurrence: None)
  Receive Date: 20081125
  Receipt Date: 20081119
  Transmission Date: 20090506
  Serious: Yes (Hospitalization)
  Sender: FDA-Public Use
  Company Number: 2008SP023623

PATIENT
  Age: 60 Year
  Sex: Male

DRUGS (3)
  1. NOXAFIL [Suspect]
     Indication: SCEDOSPORIUM INFECTION
     Dates: start: 20080902
  2. CORTICOSTEROIDS [Concomitant]
  3. VANCOMYCIN [Concomitant]

REACTIONS (5)
  - ENCEPHALOPATHY [None]
  - HYPOCALCAEMIA [None]
  - MYOCLONUS [None]
  - RENAL DISORDER [None]
  - SOMNOLENCE [None]
